FAERS Safety Report 6673472-X (Version None)
Quarter: 2010Q2

REPORT INFORMATION
  Report Type: 
  Country: None (occurrence: None)
  Receive Date: 20100408
  Receipt Date: 20100331
  Transmission Date: 20101027
  Serious: Yes (Other)
  Sender: FDA-Public Use
  Company Number: US-PURDUE-USA-2010-0043074

PATIENT
  Age: 50 Year
  Sex: Male

DRUGS (8)
  1. DILAUDID [Suspect]
     Indication: DRUG USE FOR UNKNOWN INDICATION
  2. LYRICA [Suspect]
     Indication: SCIATICA
     Dosage: 75 MG, DAILY
     Route: 048
     Dates: start: 20090507
  3. AVONEX [Suspect]
     Indication: MULTIPLE SCLEROSIS
     Dosage: UNK
     Route: 030
     Dates: start: 19990408, end: 20090409
  4. VALIUM [Suspect]
     Indication: DRUG USE FOR UNKNOWN INDICATION
     Dosage: UNK
     Dates: end: 20090507
  5. SKELAXIN [Suspect]
     Indication: DRUG USE FOR UNKNOWN INDICATION
     Dosage: UNK
     Dates: end: 20090507
  6. FLEXERIL [Suspect]
     Indication: DRUG USE FOR UNKNOWN INDICATION
  7. PERCOCET [Suspect]
     Indication: DRUG USE FOR UNKNOWN INDICATION
  8. VICODIN [Concomitant]
     Dosage: UNK
     Dates: end: 20090507

REACTIONS (10)
  - APNOEA [None]
  - BURNING SENSATION [None]
  - COMA [None]
  - DEAFNESS [None]
  - DIZZINESS [None]
  - INSOMNIA [None]
  - INTERVERTEBRAL DISC PROTRUSION [None]
  - MULTIPLE SCLEROSIS RELAPSE [None]
  - UNEVALUABLE EVENT [None]
  - WEIGHT DECREASED [None]
